FAERS Safety Report 7749738-9 (Version None)
Quarter: 2011Q3

REPORT INFORMATION
  Report Type: 
  Country: None (occurrence: None)
  Receive Date: 20110914
  Receipt Date: 20110905
  Transmission Date: 20111222
  Serious: Yes (Hospitalization, Other)
  Sender: FDA-Public Use
  Company Number: NL-JNJFOC-20110904416

PATIENT
  Age: 88 Year
  Sex: Female

DRUGS (2)
  1. OXAZEPAM [Suspect]
     Indication: HALLUCINATION
     Route: 065
  2. RISPERIDONE [Suspect]
     Indication: HALLUCINATION
     Route: 065

REACTIONS (4)
  - RENAL IMPAIRMENT [None]
  - HALLUCINATION [None]
  - ANXIETY [None]
  - RESTLESSNESS [None]
